FAERS Safety Report 6297724-0 (Version None)
Quarter: 2009Q3

REPORT INFORMATION
  Report Type: 
  Country: None (occurrence: None)
  Receive Date: 20090805
  Receipt Date: 20090722
  Transmission Date: 20100115
  Serious: Yes (Death, Other)
  Sender: FDA-Public Use
  Company Number: FR-ROCHE-641494

PATIENT
  Age: 53 Year
  Sex: Female

DRUGS (2)
  1. PEG-INTERFERON A-2A (RO 25-8310) [Suspect]
     Route: 065
     Dates: start: 20050214
  2. RIBAVIRIN [Suspect]
     Route: 065
     Dates: start: 20050214

REACTIONS (9)
  - ANAEMIA MACROCYTIC [None]
  - HEPATIC CIRRHOSIS [None]
  - INFLAMMATION [None]
  - MULTI-ORGAN FAILURE [None]
  - PERICARDITIS CONSTRICTIVE [None]
  - PLEURAL EFFUSION [None]
  - RIGHT VENTRICULAR FAILURE [None]
  - THYROIDITIS [None]
  - TUBERCULOSIS [None]
